FAERS Safety Report 14553094 (Version 1)
Quarter: 2018Q1

REPORT INFORMATION
  Report Type: Spontaneous
  Country: US (occurrence: US)
  Receive Date: 20180216
  Receipt Date: 20180216
  Transmission Date: 20180509
  Serious: Yes (Other)
  Sender: FDA-Public Use
  Company Number: None

PATIENT
  Age: 47 Year
  Sex: Female
  Weight: 58.97 kg

DRUGS (6)
  1. MAGNESIUM [Concomitant]
     Active Substance: MAGNESIUM
  2. PREDNISONE. [Concomitant]
     Active Substance: PREDNISONE
  3. METHOTREXATE. [Concomitant]
     Active Substance: METHOTREXATE
  4. MIRENA [Suspect]
     Active Substance: LEVONORGESTREL
     Dates: start: 20121206, end: 20170210
  5. SYNTHROID [Concomitant]
     Active Substance: LEVOTHYROXINE SODIUM
  6. FISH OIL [Concomitant]
     Active Substance: FISH OIL

REACTIONS (12)
  - Musculoskeletal chest pain [None]
  - Migraine [None]
  - Headache [None]
  - Pain in extremity [None]
  - Back pain [None]
  - Muscle disorder [None]
  - Muscular weakness [None]
  - Ligament pain [None]
  - Palpitations [None]
  - Gait inability [None]
  - Neuralgia [None]
  - Temporomandibular joint syndrome [None]

NARRATIVE: CASE EVENT DATE: 20130109
